FAERS Safety Report 23199993 (Version 1)
Quarter: 2023Q4

REPORT INFORMATION
  Report Type: Spontaneous
  Country: US (occurrence: None)
  Receive Date: 20231117
  Receipt Date: 20231117
  Transmission Date: 20240109
  Serious: Yes (Other)
  Sender: FDA-Public Use
  Company Number: US-ROCHE-3459809

PATIENT
  Sex: Female

DRUGS (16)
  1. XOLAIR [Suspect]
     Active Substance: OMALIZUMAB
     Indication: Asthma
     Route: 058
  2. XOLAIR [Suspect]
     Active Substance: OMALIZUMAB
  3. XOLAIR [Suspect]
     Active Substance: OMALIZUMAB
  4. CLARITHROMYCIN [Concomitant]
     Active Substance: CLARITHROMYCIN
  5. ETHAMBUTOL [Concomitant]
     Active Substance: ETHAMBUTOL HYDROCHLORIDE
  6. RIFAMPIN [Concomitant]
     Active Substance: RIFAMPIN
  7. ALBUTEROL [Concomitant]
     Active Substance: ALBUTEROL
  8. BUDESONIDE [Concomitant]
     Active Substance: BUDESONIDE
  9. BUTALBITAL [Concomitant]
     Active Substance: BUTALBITAL
  10. CHOLESTYRAMINE [Concomitant]
     Active Substance: CHOLESTYRAMINE
  11. CLINDAMYCIN [Concomitant]
     Active Substance: CLINDAMYCIN
  12. DIAZEPAM [Concomitant]
     Active Substance: DIAZEPAM
  13. DIPHENOXYLATE [Concomitant]
     Active Substance: DIPHENOXYLATE
  14. DONEPEZIL [Concomitant]
     Active Substance: DONEPEZIL
  15. TYLENOL [Concomitant]
     Active Substance: ACETAMINOPHEN
  16. VENTOLIN [Concomitant]
     Active Substance: ALBUTEROL SULFATE

REACTIONS (1)
  - Pneumonia [Not Recovered/Not Resolved]
